FAERS Safety Report 6569600-7 (Version None)
Quarter: 2010Q1

REPORT INFORMATION
  Report Type: 
  Country: None (occurrence: None)
  Receive Date: 20100204
  Receipt Date: 20100127
  Transmission Date: 20100710
  Serious: Yes (Hospitalization)
  Sender: FDA-Public Use
  Company Number: JP-ASTRAZENECA-2010SE02280

PATIENT
  Age: 30572 Day
  Sex: Female
  Weight: 48 kg

DRUGS (8)
  1. IRESSA [Suspect]
     Indication: LUNG SQUAMOUS CELL CARCINOMA STAGE UNSPECIFIED
     Route: 048
     Dates: start: 20091203, end: 20100106
  2. IRESSA [Suspect]
     Route: 048
     Dates: start: 20100107, end: 20100113
  3. ADALAT [Concomitant]
     Indication: HYPERTENSION
     Route: 048
     Dates: end: 20100115
  4. LOCHOL [Concomitant]
     Indication: HYPERLIPIDAEMIA
     Route: 048
     Dates: end: 20100117
  5. RINLAXER [Concomitant]
     Indication: OSTEOARTHRITIS
     Dosage: DAILY
     Route: 048
     Dates: end: 20100120
  6. LOXONIN [Concomitant]
     Indication: OSTEOARTHRITIS
     Route: 048
  7. GASTER D [Concomitant]
     Route: 048
  8. DEPAS [Concomitant]
     Route: 048

REACTIONS (2)
  - HEPATIC FUNCTION ABNORMAL [None]
  - PLATELET COUNT DECREASED [None]
